FAERS Safety Report 9004019 (Version 2)
Quarter: 2013Q1

REPORT INFORMATION
  Report Type: Spontaneous
  Country: US (occurrence: US)
  Receive Date: 20130108
  Receipt Date: 20130110
  Transmission Date: 20140127
  Serious: Yes (Hospitalization, Disabling, Other)
  Sender: FDA-Public Use
  Company Number: US-009507513-1103USA00952

PATIENT
  Sex: 0

DRUGS (7)
  1. FOSAMAX [Suspect]
     Indication: OSTEOPENIA
     Dosage: 70 MG, QW
     Route: 048
     Dates: start: 20011017, end: 200801
  2. ALENDRONATE SODIUM [Suspect]
     Indication: OSTEOPENIA
     Dosage: 70 MG, QW
     Route: 048
     Dates: start: 200802, end: 201004
  3. FOSAMAX [Suspect]
     Indication: OSTEOPOROSIS
     Route: 048
  4. ASCORBIC ACID [Concomitant]
     Dosage: 400 MG, QD
     Dates: start: 1968
  5. VITAMIN D (UNSPECIFIED) [Concomitant]
     Dosage: 2000 UNK, ONCE DAILY
     Dates: start: 1968
  6. CENTRUM SILVER [Concomitant]
     Dosage: UNK UNK, QD
     Dates: start: 1968
  7. CALCIUM (UNSPECIFIED) [Concomitant]
     Indication: OSTEOPENIA
     Dosage: 1260 DF, QD
     Dates: start: 2003

REACTIONS (17)
  - Femur fracture [Recovering/Resolving]
  - Closed fracture manipulation [Recovering/Resolving]
  - Fall [Recovering/Resolving]
  - Femur fracture [Unknown]
  - Low turnover osteopathy [Unknown]
  - Hypothyroidism [Unknown]
  - Gastrooesophageal reflux disease [Unknown]
  - Hypertension [Unknown]
  - Arthritis [Unknown]
  - Tooth extraction [Unknown]
  - Endodontic procedure [Unknown]
  - Endodontic procedure [Unknown]
  - Tooth loss [Unknown]
  - Dental prosthesis placement [Unknown]
  - Dental prosthesis placement [Unknown]
  - Dental caries [Unknown]
  - Osteoarthritis [Unknown]
